FAERS Safety Report 21979613 (Version 2)
Quarter: 2023Q1

REPORT INFORMATION
  Report Type: Spontaneous
  Country: JP (occurrence: JP)
  Receive Date: 20230210
  Receipt Date: 20230217
  Transmission Date: 20230418
  Serious: Yes (Other)
  Sender: FDA-Public Use
  Company Number: JP-TAKEDA-2023TUS010666

PATIENT
  Age: 64 Year
  Sex: Female
  Weight: 56 kg

DRUGS (6)
  1. LIALDA [Suspect]
     Active Substance: MESALAMINE
     Indication: Colitis ulcerative
     Dosage: 4800 MILLIGRAM, QD
     Route: 048
     Dates: start: 20221222, end: 20230125
  2. LIALDA [Suspect]
     Active Substance: MESALAMINE
     Dosage: 2400 MILLIGRAM, Q12H
     Route: 048
     Dates: start: 20230125
  3. PREDONINE [Concomitant]
     Active Substance: PREDNISOLONE
     Indication: Colitis ulcerative
     Dosage: 30 MILLIGRAM, QD
     Route: 065
     Dates: start: 20221222, end: 20230111
  4. PREDONINE [Concomitant]
     Active Substance: PREDNISOLONE
     Dosage: 20 MILLIGRAM, QD
     Route: 065
     Dates: start: 20230112, end: 20230118
  5. PREDONINE [Concomitant]
     Active Substance: PREDNISOLONE
     Dosage: 15 MILLIGRAM, QD
     Route: 065
     Dates: start: 20230119
  6. PENTASA [Concomitant]
     Active Substance: MESALAMINE
     Indication: Colitis ulcerative
     Dosage: 1 DOSAGE FORM, QD
     Route: 065
     Dates: start: 20221222

REACTIONS (2)
  - Cytomegalovirus infection [Unknown]
  - Colitis ulcerative [Unknown]

NARRATIVE: CASE EVENT DATE: 20230110
